FAERS Safety Report 6071280-4 (Version None)
Quarter: 2009Q1

REPORT INFORMATION
  Report Type: 
  Country: None (occurrence: None)
  Receive Date: 20090204
  Receipt Date: 20090123
  Transmission Date: 20090719
  Serious: Yes (Death)
  Sender: FDA-Public Use
  Company Number: TRP_06056_2009

PATIENT
  Age: 36 Year
  Sex: Male

DRUGS (10)
  1. AMPHOTERICIN B [Suspect]
     Indication: FUNGAL INFECTION
     Dosage: (5 MG/KG ADMINISTERED OVER TWO HOURS)
  2. VORICONAZOLE [Concomitant]
  3. CASPOFUNGIN [Concomitant]
  4. CHEMOTHERAPEUTICS NOS [Concomitant]
  5. CILASTATIN W/IMIPENEM [Concomitant]
  6. CYCLOSPORINE [Concomitant]
  7. MYCOPHENOLATE MOFETIL [Concomitant]
  8. PROPOFOL [Concomitant]
  9. NADROPARIN [Concomitant]
  10. COTRIMOXAZOLE [Concomitant]

REACTIONS (7)
  - ARRHYTHMIA [None]
  - CARDIAC ARREST [None]
  - DISEASE RECURRENCE [None]
  - HYPERKALAEMIA [None]
  - RENAL IMPAIRMENT [None]
  - SINUS BRADYCARDIA [None]
  - VENTRICULAR FIBRILLATION [None]
